FAERS Safety Report 5244288-6 (Version None)
Quarter: 2007Q1

REPORT INFORMATION
  Report Type: 
  Country: None (occurrence: None)
  Receive Date: 20070222
  Receipt Date: 20070214
  Transmission Date: 20070707
  Serious: Yes (Other)
  Sender: FDA-Public Use
  Company Number: PHFR2007GB00801

PATIENT
  Age: 45 Year
  Sex: Male

DRUGS (2)
  1. ZOMETA [Suspect]
     Route: 065
  2. AREDIA [Suspect]
     Route: 065

REACTIONS (1)
  - OSTEONECROSIS [None]
